FAERS Safety Report 14205803 (Version 6)
Quarter: 2020Q1

REPORT INFORMATION
  Report Type: Spontaneous
  Country: IT (occurrence: IT)
  Receive Date: 20171120
  Receipt Date: 20200304
  Transmission Date: 20200409
  Serious: Yes (Death, Life-Threatening, Hospitalization, Other)
  Sender: FDA-Public Use
  Company Number: IT-SA-2017SA227660

PATIENT
  Age: 38 Year
  Sex: Female
  Weight: 55 kg

DRUGS (11)
  1. LEMTRADA [Suspect]
     Active Substance: ALEMTUZUMAB
     Indication: RELAPSING-REMITTING MULTIPLE SCLEROSIS
     Dosage: UNK UNK,QD
     Route: 041
     Dates: start: 20171023, end: 20171027
  2. PARACETAMOL [Concomitant]
     Active Substance: ACETAMINOPHEN
     Indication: PROPHYLAXIS
     Dosage: 1 G, QD
     Route: 048
     Dates: start: 20171023, end: 20171027
  3. THIAMAZOLE [Concomitant]
     Active Substance: METHIMAZOLE
     Indication: AUTOIMMUNE THYROIDITIS
  4. PARACETAMOL [Concomitant]
     Active Substance: ACETAMINOPHEN
     Indication: INFUSION RELATED REACTION
  5. METHYLPREDNISOLONE. [Suspect]
     Active Substance: METHYLPREDNISOLONE
     Indication: PROPHYLAXIS
     Dosage: 1 G, QD (TAPERING DOSE)
     Route: 040
     Dates: start: 20171023, end: 20171027
  6. CETIRIZINE [Concomitant]
     Active Substance: CETIRIZINE HYDROCHLORIDE
     Indication: PROPHYLAXIS
     Dosage: 10 MG, QD
     Route: 048
     Dates: start: 20171023, end: 20171027
  7. CETIRIZINE [Concomitant]
     Active Substance: CETIRIZINE HYDROCHLORIDE
     Indication: INFUSION RELATED REACTION
  8. ACYCLOVIR [ACICLOVIR] [Concomitant]
     Active Substance: ACYCLOVIR
     Indication: INFECTION PROPHYLAXIS
     Dosage: 200 MG, BID
     Dates: start: 20171023, end: 20171027
  9. ACYCLOVIR [ACICLOVIR] [Concomitant]
     Active Substance: ACYCLOVIR
     Dosage: 200 MG, BID
     Route: 048
  10. PREDNISONE. [Suspect]
     Active Substance: PREDNISONE
     Indication: STEROID THERAPY
     Dosage: TAPERING WITH A STARTING DOSE OF 50 MG ONCE A DAY FOR 14 DAYS
     Route: 048
     Dates: start: 20171023, end: 20171027
  11. PREDNISONE. [Suspect]
     Active Substance: PREDNISONE
     Dosage: 50 MG
     Route: 048

REACTIONS (14)
  - Asthenia [Fatal]
  - Pyrexia [Fatal]
  - Leukopenia [Fatal]
  - Cardiac arrest [Fatal]
  - Bronchopulmonary aspergillosis [Fatal]
  - Influenza like illness [Fatal]
  - Hypoxia [Fatal]
  - Neutropenia [Fatal]
  - Dyspnoea [Fatal]
  - Pneumonia necrotising [Fatal]
  - Vomiting [Fatal]
  - Cough [Fatal]
  - Lymphopenia [Fatal]
  - Cyanosis [Fatal]

NARRATIVE: CASE EVENT DATE: 201711
